FAERS Safety Report 16411415 (Version 6)
Quarter: 2020Q3

REPORT INFORMATION
  Report Type: Report from Study
  Country: US (occurrence: US)
  Receive Date: 20190610
  Receipt Date: 20200930
  Transmission Date: 20201102
  Serious: Yes (Hospitalization)
  Sender: FDA-Public Use
  Company Number: US-EISAI MEDICAL RESEARCH-EC-2018-047584

PATIENT
  Age: 75 Year
  Sex: Male
  Weight: 104.32 kg

DRUGS (26)
  1. ALLOPURINOL. [Concomitant]
     Active Substance: ALLOPURINOL
  2. CEPHALEXIN. [Concomitant]
     Active Substance: CEPHALEXIN
  3. VANCOMYCIN [Concomitant]
     Active Substance: VANCOMYCIN
  4. LENVIMA [Suspect]
     Active Substance: LENVATINIB
     Indication: THYROID CANCER
     Route: 048
     Dates: start: 20181023
  5. SIMVASTATIN. [Concomitant]
     Active Substance: SIMVASTATIN
  6. PLAVIX [Concomitant]
     Active Substance: CLOPIDOGREL BISULFATE
  7. IMODIUM [Concomitant]
     Active Substance: LOPERAMIDE HYDROCHLORIDE
  8. LENVIMA [Suspect]
     Active Substance: LENVATINIB
     Route: 048
     Dates: start: 2019, end: 20191223
  9. B COMPLEX TABLET [Concomitant]
  10. VITAMIN E + A OIL [Concomitant]
  11. ATORVASTATIN [Concomitant]
     Active Substance: ATORVASTATIN
  12. LENVIMA [Suspect]
     Active Substance: LENVATINIB
     Dates: start: 2020
  13. VITAMIN C [Concomitant]
     Active Substance: ASCORBIC ACID
  14. COLCHICINE. [Concomitant]
     Active Substance: COLCHICINE
  15. SPIRONOLACTONE. [Concomitant]
     Active Substance: SPIRONOLACTONE
  16. PILOCARPINE 1% [Concomitant]
     Active Substance: PILOCARPINE
  17. BIOTIN?D [Concomitant]
  18. LENVIMA [Suspect]
     Active Substance: LENVATINIB
     Route: 048
     Dates: start: 2019, end: 2019
  19. POTASSIUM [Concomitant]
     Active Substance: POTASSIUM
  20. FUROSEMIDE. [Concomitant]
     Active Substance: FUROSEMIDE
  21. CHONDROITIN SULFATE [Concomitant]
     Active Substance: CHONDROITIN SULFATE (BOVINE)
  22. ASPIRIN. [Concomitant]
     Active Substance: ASPIRIN
  23. PENTOXIFYLLINE. [Concomitant]
     Active Substance: PENTOXIFYLLINE
  24. LEVOTHYROXINE. [Concomitant]
     Active Substance: LEVOTHYROXINE
  25. AZITHROMYCIN ANHYDROUS. [Concomitant]
     Active Substance: AZITHROMYCIN ANHYDROUS
  26. DOXYCYCLINE. [Concomitant]
     Active Substance: DOXYCYCLINE

REACTIONS (14)
  - Decreased appetite [Not Recovered/Not Resolved]
  - Flatulence [Not Recovered/Not Resolved]
  - Pneumonia [Recovering/Resolving]
  - Headache [Not Recovered/Not Resolved]
  - Blister [Unknown]
  - Dehydration [Unknown]
  - Malignant neoplasm progression [Unknown]
  - Fatigue [Not Recovered/Not Resolved]
  - Arthralgia [Not Recovered/Not Resolved]
  - Ulcer [Unknown]
  - Diarrhoea [Not Recovered/Not Resolved]
  - Dysphonia [Not Recovered/Not Resolved]
  - Abdominal pain upper [Unknown]
  - Clostridium difficile infection [Unknown]

NARRATIVE: CASE EVENT DATE: 2018
